FAERS Safety Report 8951409 (Version 1)
Quarter: 2012Q4

REPORT INFORMATION
  Report Type: Spontaneous
  Country: GB (occurrence: None)
  Receive Date: 20121129
  Receipt Date: 20121129
  Transmission Date: 20130627
  Serious: Yes (Disabling)
  Sender: FDA-Public Use
  Company Number: CL-450-2012

PATIENT
  Age: 61 Year
  Sex: Female
  Weight: 53 kg

DRUGS (6)
  1. CIPROFLOXACIN [Suspect]
     Route: 048
     Dates: start: 20120524, end: 20121102
  2. SALICYCLIC ACID [Concomitant]
  3. OMEPRAZOLE [Concomitant]
  4. SPIRONOLACTONE [Concomitant]
  5. THIAMINE [Concomitant]
  6. VITAMIN B COMPLEX STRONG (NICOTINAMIDE, PYRIDOXINE HYDROCHLORIDE, RIBOFLAVIN, THIAMINE HYDROCHLORIDE) [Concomitant]

REACTIONS (1)
  - Tardive dyskinesia [None]
